FAERS Safety Report 5886359-7 (Version None)
Quarter: 2008Q3

REPORT INFORMATION
  Report Type: 
  Country: None (occurrence: None)
  Receive Date: 20080917
  Receipt Date: 20080908
  Transmission Date: 20090109
  Serious: Yes (Other)
  Sender: FDA-Public Use
  Company Number: JP-ASTRAZENECA-2007AP06793

PATIENT
  Age: 38 Year
  Sex: Female

DRUGS (3)
  1. LIDOCAINE [Suspect]
     Indication: SKIN TEST
     Dosage: DOSE UNKNOWN
     Route: 023
  2. OXYBUPROCAINE [Concomitant]
     Route: 047
  3. PROCAINE HCL [Concomitant]
     Indication: LOCAL ANAESTHESIA

REACTIONS (1)
  - SHOCK [None]
